FAERS Safety Report 8261176-1 (Version None)
Quarter: 2012Q2

REPORT INFORMATION
  Report Type: 
  Country: None (occurrence: None)
  Receive Date: 20120405
  Receipt Date: 20120327
  Transmission Date: 20120825
  Serious: Yes (Hospitalization)
  Sender: FDA-Public Use
  Company Number: US-US-EMD SERONO, INC.-7110608

PATIENT
  Sex: Female

DRUGS (2)
  1. REBIF [Suspect]
     Indication: MULTIPLE SCLEROSIS
     Route: 058
     Dates: start: 20110802, end: 20111201
  2. REBIF [Suspect]
     Route: 058

REACTIONS (3)
  - HERPES ZOSTER [None]
  - DEPRESSION [None]
  - INJECTION SITE REACTION [None]
